FAERS Safety Report 7474954-3 (Version None)
Quarter: 2011Q2

REPORT INFORMATION
  Report Type: 
  Country: None (occurrence: None)
  Receive Date: 20110509
  Receipt Date: 20110509
  Transmission Date: 20111010
  Serious: Yes (Other)
  Sender: FDA-Public Use
  Company Number: None

PATIENT
  Age: 38 Year
  Sex: Female
  Weight: 63.5036 kg

DRUGS (1)
  1. CREST PRO HEALTH COMPLETE RINSE 16.9 FL OZ CREST [Suspect]
     Indication: DENTAL DISORDER PROPHYLAXIS
     Dosage: 2 TSP 2X PER DAY PO
     Route: 048
     Dates: start: 20110505, end: 20110505

REACTIONS (3)
  - AGEUSIA [None]
  - THERMAL BURN [None]
  - TONGUE DISORDER [None]
